FAERS Safety Report 7391130-3 (Version None)
Quarter: 2011Q2

REPORT INFORMATION
  Report Type: 
  Country: None (occurrence: None)
  Receive Date: 20110404
  Receipt Date: 20110325
  Transmission Date: 20111010
  Serious: Yes (Hospitalization)
  Sender: FDA-Public Use
  Company Number: GB-B.I. PHARMACEUTICALS,INC./RIDGEFIELD-2010-UK-01182UK

PATIENT
  Age: 76 Year
  Sex: Male

DRUGS (2)
  1. OTHER MEDICATIONS [Concomitant]
  2. PRADAXA [Suspect]
     Indication: KNEE ARTHROPLASTY

REACTIONS (3)
  - JAUNDICE [None]
  - CHOLESTASIS [None]
  - CHOLELITHIASIS [None]
